FAERS Safety Report 20069822 (Version 3)
Quarter: 2021Q4

REPORT INFORMATION
  Report Type: Report from Study
  Country: AR (occurrence: AR)
  Receive Date: 20211115
  Receipt Date: 20211122
  Transmission Date: 20220303
  Serious: Yes (Hospitalization, Disabling)
  Sender: FDA-Public Use
  Company Number: AR-GLAXOSMITHKLINE-AR2021GSK227577

PATIENT
  Age: 48 Year
  Sex: Male

DRUGS (4)
  1. MEPOLIZUMAB [Suspect]
     Active Substance: MEPOLIZUMAB
     Indication: Chronic obstructive pulmonary disease
     Dosage: 100 MG
     Route: 058
     Dates: start: 20210701
  2. BUDESONIDA + FORMOTEROL [Concomitant]
     Indication: Chronic obstructive pulmonary disease
     Dosage: 160 UG
     Route: 055
     Dates: start: 20211021
  3. OMEPRAZOLE [Concomitant]
     Active Substance: OMEPRAZOLE
     Indication: Gastrointestinal disorder prophylaxis
     Dosage: 20 MG
     Route: 048
     Dates: start: 20211109
  4. ENALAPRIL [Concomitant]
     Active Substance: ENALAPRIL
     Indication: Hypertension
     Dosage: 10 MG
     Route: 048
     Dates: start: 20211109

REACTIONS (1)
  - Ischaemic stroke [Recovered/Resolved with Sequelae]

NARRATIVE: CASE EVENT DATE: 20211029
